FAERS Safety Report 16692703 (Version 1)
Quarter: 2019Q3

REPORT INFORMATION
  Report Type: Spontaneous
  Country: DE (occurrence: DE)
  Receive Date: 20190812
  Receipt Date: 20190812
  Transmission Date: 20191004
  Serious: Yes (Hospitalization, Other)
  Sender: FDA-Public Use
  Company Number: DE-SA-2019SA080530

PATIENT
  Age: 61 Year
  Sex: Female
  Weight: 70 kg

DRUGS (3)
  1. AUBAGIO [Suspect]
     Active Substance: TERIFLUNOMIDE
     Indication: MULTIPLE SCLEROSIS
     Dosage: 1 DF, QD
     Route: 048
     Dates: start: 201709
  2. AVONEX [Concomitant]
     Active Substance: INTERFERON BETA-1A
     Indication: MULTIPLE SCLEROSIS
     Dosage: UNK
     Dates: start: 2014, end: 201705
  3. L-THYROXINE [LEVOTHYROXINE] [Concomitant]
     Active Substance: LEVOTHYROXINE
     Indication: HYPOTHYROIDISM
     Dosage: UNK UNK, QD

REACTIONS (17)
  - Hypertension [Unknown]
  - Pain in extremity [Unknown]
  - Productive cough [Unknown]
  - Headache [Unknown]
  - Visual impairment [Unknown]
  - Fibrosis [Unknown]
  - Viral infection [Unknown]
  - Vertigo [Unknown]
  - Dizziness [Unknown]
  - Chronic obstructive pulmonary disease [Unknown]
  - Dyspnoea [Unknown]
  - Tachypnoea [Unknown]
  - Interstitial lung disease [Unknown]
  - Chest pain [Unknown]
  - Cough [Unknown]
  - Oedema peripheral [Unknown]
  - Vision blurred [Unknown]
